FAERS Safety Report 14012286 (Version 1)
Quarter: 2017Q3

REPORT INFORMATION
  Report Type: Spontaneous
  Country: SE (occurrence: SE)
  Receive Date: 20170926
  Receipt Date: 20170926
  Transmission Date: 20171128
  Serious: Yes (Disabling)
  Sender: FDA-Public Use
  Company Number: SE-PFIZER INC-2017413484

PATIENT
  Age: 63 Year
  Sex: Male

DRUGS (1)
  1. CORDARONE [Suspect]
     Active Substance: AMIODARONE HYDROCHLORIDE
     Indication: CARDIAC FIBRILLATION
     Dosage: 200 MG, DAILY
     Route: 048
     Dates: start: 20160910, end: 20170511

REACTIONS (1)
  - Corneal pigmentation [Unknown]

NARRATIVE: CASE EVENT DATE: 20170501
